FAERS Safety Report 4806942-7 (Version None)
Quarter: 2005Q4

REPORT INFORMATION
  Report Type: 
  Country: None (occurrence: None)
  Receive Date: 20051019
  Receipt Date: 20051006
  Transmission Date: 20060501
  Serious: Yes (Death, Hospitalization, Other)
  Sender: FDA-Public Use
  Company Number: 2005138987

PATIENT
  Age: 55 Year
  Sex: Male

DRUGS (8)
  1. HYDROCORTISONE ACETATE [Suspect]
     Indication: ILL-DEFINED DISORDER
     Dosage: 30 MG (30 MG, 1 IN 1 D)
  2. ANAKINRA (ANAKINRA [Suspect]
     Indication: RHEUMATOID ARTHRITIS
     Dosage: (100 MG), SUBCUTANEOUS
     Route: 058
     Dates: start: 20050311, end: 20050322
  3. FOLIC ACID [Concomitant]
  4. ATORVASTATIN CALCIUM [Concomitant]
  5. PERINDOPRIL (PERINDOPRIL) [Concomitant]
  6. METHOTREXATE [Concomitant]
  7. CELECOXIB (CELECOXIB) [Concomitant]
  8. WARFARIN SODIUM [Concomitant]

REACTIONS (9)
  - ARM AMPUTATION [None]
  - BLISTER [None]
  - BLOOD PRESSURE ABNORMAL [None]
  - GANGRENE [None]
  - NECROTISING FASCIITIS STREPTOCOCCAL [None]
  - OEDEMA PERIPHERAL [None]
  - PAIN IN EXTREMITY [None]
  - PERIPHERAL COLDNESS [None]
  - RENAL FAILURE [None]
